FAERS Safety Report 8048485-6 (Version None)
Quarter: 2012Q1

REPORT INFORMATION
  Report Type: 
  Country: None (occurrence: None)
  Receive Date: 20120117
  Receipt Date: 20120112
  Transmission Date: 20120608
  Serious: No
  Sender: FDA-Public Use
  Company Number: US-PFIZER INC-2011301144

PATIENT
  Age: 80 Year
  Sex: Female

DRUGS (1)
  1. CELEBREX [Suspect]
     Dosage: UNK
     Route: 048

REACTIONS (7)
  - ARTHROPATHY [None]
  - ERYTHEMA [None]
  - ARTHRITIS [None]
  - JOINT WARMTH [None]
  - PAIN [None]
  - HYPERTENSION [None]
  - PAIN IN EXTREMITY [None]
